FAERS Safety Report 8396773-6 (Version None)
Quarter: 2012Q1

REPORT INFORMATION
  Report Type: 
  Country: None (occurrence: None)
  Receive Date: 20120323
  Receipt Date: 20110719
  Transmission Date: 20120608
  Serious: Yes (Other)
  Sender: FDA-Public Use
  Company Number: 163-21880-11042256

PATIENT
  Age: 59 Year
  Sex: Female

DRUGS (4)
  1. REVLIMID [Suspect]
     Indication: MULTIPLE MYELOMA
     Dosage: 25 MG, DAILY FOR 14 DAYS THEN 7 DAYS OFF, PO, 15 MG, DAILY FOR 14 DAYS THEN 7 DAYS OFF, PO
     Route: 048
     Dates: start: 20110310, end: 20110401
  2. REVLIMID [Suspect]
     Indication: MULTIPLE MYELOMA
     Dosage: 25 MG, DAILY FOR 14 DAYS THEN 7 DAYS OFF, PO, 15 MG, DAILY FOR 14 DAYS THEN 7 DAYS OFF, PO
     Route: 048
     Dates: start: 20110401
  3. REVLIMID [Suspect]
  4. REVLIMID [Suspect]

REACTIONS (2)
  - DEEP VEIN THROMBOSIS [None]
  - CONSTIPATION [None]
